FAERS Safety Report 15832879 (Version 1)
Quarter: 2019Q1

REPORT INFORMATION
  Report Type: Spontaneous
  Country: JP (occurrence: JP)
  Receive Date: 20190116
  Receipt Date: 20190116
  Transmission Date: 20190417
  Serious: Yes (Other)
  Sender: FDA-Public Use
  Company Number: JP-ACS-001304

PATIENT
  Age: 36 Year
  Sex: Male

DRUGS (1)
  1. CEFTRIAXONE. [Suspect]
     Active Substance: CEFTRIAXONE
     Indication: NEUROSYPHILIS
     Route: 065
     Dates: start: 201709

REACTIONS (1)
  - Jarisch-Herxheimer reaction [Recovered/Resolved]

NARRATIVE: CASE EVENT DATE: 201709
